FAERS Safety Report 8421000-0 (Version None)
Quarter: 2012Q2

REPORT INFORMATION
  Report Type: 
  Country: None (occurrence: None)
  Receive Date: 20120531
  Receipt Date: 20111109
  Transmission Date: 20120825
  Serious: Yes (Other)
  Sender: FDA-Public Use
  Company Number: 2008JP001505

PATIENT
  Age: 22 Year
  Sex: Male

DRUGS (5)
  1. ITRACONAZOLE [Concomitant]
  2. FUNGUARD (MICAFUNGIN) INJECTION [Suspect]
     Indication: ACANTHAMOEBA KERATITIS
     Dosage: , OPHTHALMIC
     Route: 047
  3. FLUCONAZOLE (FLUCONAZOLE) EYE DROP [Concomitant]
  4. CHLORHEXIDINE GLUCONATE [Suspect]
     Indication: ACANTHAMOEBA KERATITIS
     Dosage: , OPHTHALMIC
     Route: 047
  5. MOXIFLOXACIN (MOXIFLOXACIN) EYE DROP [Concomitant]

REACTIONS (7)
  - OFF LABEL USE [None]
  - ACANTHAMOEBA KERATITIS [None]
  - INCORRECT ROUTE OF DRUG ADMINISTRATION [None]
  - DRUG RESISTANCE [None]
  - TOXICITY TO VARIOUS AGENTS [None]
  - DRUG PRESCRIBING ERROR [None]
  - CONDITION AGGRAVATED [None]
